FAERS Safety Report 7630908-5 (Version None)
Quarter: 2011Q3

REPORT INFORMATION
  Report Type: 
  Country: None (occurrence: None)
  Receive Date: 20110725
  Receipt Date: 20110714
  Transmission Date: 20111222
  Serious: Yes (Hospitalization, Other)
  Sender: FDA-Public Use
  Company Number: US-BRISTOL-MYERS SQUIBB COMPANY-15867906

PATIENT
  Age: 57 Year
  Sex: Female
  Weight: 74 kg

DRUGS (8)
  1. CETUXIMAB [Suspect]
     Indication: NON-SMALL CELL LUNG CANCER
     Dosage: 26JAN11-18MAY11(111D),WITHDRAWN FROM STUDY ON 13JUN11,NO OF INF: 15
     Route: 042
     Dates: start: 20110126, end: 20110518
  2. PEMETREXED DISODIUM [Suspect]
     Indication: NON-SMALL CELL LUNG CANCER
     Dosage: WITHDRAWN FROM STUDY ON 13JUN11,NO OF INF: 6
     Route: 042
     Dates: start: 20110126, end: 20110518
  3. FOLIC ACID [Concomitant]
     Route: 048
  4. CARBOPLATIN [Suspect]
     Indication: NON-SMALL CELL LUNG CANCER
     Dosage: WITHDRAWN FROM STUDY ON 13JUN11,NO OF INF: 6
     Route: 042
     Dates: start: 20110126, end: 20110518
  5. OXYGEN [Concomitant]
     Indication: CHRONIC OBSTRUCTIVE PULMONARY DISEASE
     Dosage: MAINLY AT NIGHT
     Route: 055
  6. ALBUTEROL SULFATE AUTOHALER [Concomitant]
     Indication: CHRONIC OBSTRUCTIVE PULMONARY DISEASE
     Route: 055
  7. MAGNESIUM [Concomitant]
     Indication: PROPHYLAXIS
     Route: 065
     Dates: start: 20110530
  8. POTASSIUM [Concomitant]
     Indication: PROPHYLAXIS
     Route: 065
     Dates: start: 20110530

REACTIONS (4)
  - SYNCOPE [None]
  - NEUTROPENIA [None]
  - THROMBOCYTOPENIA [None]
  - ANAEMIA [None]
